FAERS Safety Report 19767324 (Version 1)
Quarter: 2021Q3

REPORT INFORMATION
  Report Type: Spontaneous
  Country: US (occurrence: US)
  Receive Date: 20210830
  Receipt Date: 20210830
  Transmission Date: 20211014
  Serious: Yes (Life-Threatening, Hospitalization, Other)
  Sender: FDA-Public Use
  Company Number: None

PATIENT
  Age: 40 Year
  Sex: Female
  Weight: 102 kg

DRUGS (1)
  1. ERTUGLIFLOZIN [Suspect]
     Active Substance: ERTUGLIFLOZIN
     Indication: DIABETES MELLITUS
     Route: 048
     Dates: start: 20210331, end: 20210827

REACTIONS (2)
  - Sepsis [None]
  - Fournier^s gangrene [None]

NARRATIVE: CASE EVENT DATE: 20210827
